FAERS Safety Report 24874886 (Version 1)
Quarter: 2025Q1

REPORT INFORMATION
  Report Type: Spontaneous
  Country: US (occurrence: US)
  Receive Date: 20250122
  Receipt Date: 20250122
  Transmission Date: 20250409
  Serious: No
  Sender: Phathom Pharmaceuticals
  Company Number: US-PHATHOM PHARMACEUTICALS INC.-2024PHT01001

PATIENT
  Age: 65 Year
  Sex: Female

DRUGS (10)
  1. VOQUEZNA [Suspect]
     Active Substance: VONOPRAZAN FUMARATE
     Indication: Gastrooesophageal reflux disease
     Dosage: 40 MG, 1X/DAY
     Route: 048
     Dates: start: 20240829, end: 20240911
  2. VOQUEZNA [Suspect]
     Active Substance: VONOPRAZAN FUMARATE
     Indication: Oesophagitis
     Dosage: 20 MG, 1X/DAY
     Route: 048
     Dates: start: 20240912, end: 202409
  3. VOQUEZNA [Suspect]
     Active Substance: VONOPRAZAN FUMARATE
     Dosage: 10 MG, 1X/DAY
     Route: 048
     Dates: start: 202409, end: 20240926
  4. SPIRONOLACTONE [Concomitant]
     Active Substance: SPIRONOLACTONE
  5. TRILIPIX [Concomitant]
     Active Substance: FENOFIBRIC ACID
  6. ROSUVASTATIN [Concomitant]
     Active Substance: ROSUVASTATIN
  7. ZOLPIDEM [Concomitant]
     Active Substance: ZOLPIDEM TARTRATE
  8. CARVEDILOL [Concomitant]
     Active Substance: CARVEDILOL
  9. CRESTOR [Concomitant]
     Active Substance: ROSUVASTATIN CALCIUM
  10. HUMALOG [Concomitant]
     Active Substance: INSULIN LISPRO

REACTIONS (7)
  - Constipation [Unknown]
  - Diarrhoea [Unknown]
  - Abdominal distension [Unknown]
  - Dyspepsia [Unknown]
  - Hypertension [Unknown]
  - Urinary tract infection [Not Recovered/Not Resolved]
  - Off label use [Recovered/Resolved]

NARRATIVE: CASE EVENT DATE: 20240101
